FAERS Safety Report 8090853-0 (Version None)
Quarter: 2012Q1

REPORT INFORMATION
  Report Type: 
  Country: None (occurrence: None)
  Receive Date: 20120131
  Receipt Date: 20120119
  Transmission Date: 20120608
  Serious: Yes (Hospitalization)
  Sender: FDA-Public Use
  Company Number: US-JNJFOC-20120109453

PATIENT
  Sex: Male
  Weight: 26.1 kg

DRUGS (8)
  1. ADALIMUMAB [Concomitant]
     Indication: PRODUCT USED FOR UNKNOWN INDICATION
     Dates: start: 20101209
  2. AZATHIOPRINE [Concomitant]
  3. ZYRTEC [Concomitant]
  4. NEXIUM [Concomitant]
  5. MULTIVITAMIN [Concomitant]
  6. REMICADE [Suspect]
     Indication: CROHN'S DISEASE
     Route: 042
  7. PREDNISONE TAB [Concomitant]
  8. ENZYMES [Concomitant]

REACTIONS (1)
  - CROHN'S DISEASE [None]
